FAERS Safety Report 5611964-2 (Version None)
Quarter: 2008Q1

REPORT INFORMATION
  Report Type: 
  Country: None (occurrence: None)
  Receive Date: 20080204
  Receipt Date: 20080125
  Transmission Date: 20080703
  Serious: Yes (Other)
  Sender: FDA-Public Use
  Company Number: JP-BAYER-200810160BYL

PATIENT
  Age: 80 Year
  Sex: Male

DRUGS (7)
  1. ASPIRIN [Suspect]
     Indication: CEREBRAL INFARCTION
     Dosage: TOTAL DAILY DOSE: 100 MG  UNIT DOSE: 100 MG
     Route: 048
     Dates: start: 20070201
  2. AMLODIN OD [Concomitant]
     Dosage: TOTAL DAILY DOSE: 2.5 MG  UNIT DOSE: 2.5 MG
     Route: 048
  3. WARKMIN [Concomitant]
     Dosage: TOTAL DAILY DOSE: 1.0 ?G  UNIT DOSE: 1 ?G
     Route: 048
  4. BENCLART [Concomitant]
     Dosage: TOTAL DAILY DOSE: 5 MG  UNIT DOSE: 2.5 MG
     Route: 048
  5. MEVALOTIN [Concomitant]
     Dosage: TOTAL DAILY DOSE: 10 MG  UNIT DOSE: 5 MG
     Route: 048
  6. MECOBALAMIN [Concomitant]
     Dosage: TOTAL DAILY DOSE: 1500 ?G  UNIT DOSE: 500 ?G
     Route: 048
  7. BAKUMONDO-TO [Concomitant]
     Dosage: TOTAL DAILY DOSE: 9 G  UNIT DOSE: 3 G
     Route: 048

REACTIONS (3)
  - ANGIOEDEMA [None]
  - SWELLING FACE [None]
  - SWOLLEN TONGUE [None]
